FAERS Safety Report 25833367 (Version 1)
Quarter: 2025Q3

REPORT INFORMATION
  Report Type: Spontaneous
  Country: GB (occurrence: GB)
  Receive Date: 20250922
  Receipt Date: 20250922
  Transmission Date: 20251020
  Serious: Yes (Hospitalization, Other)
  Sender: GALPHARM INTERNATIONAL
  Company Number: None

PATIENT
  Sex: Female

DRUGS (79)
  1. NAPROXEN [Suspect]
     Active Substance: NAPROXEN
     Indication: Endometriosis
     Route: 065
  2. NAPROXEN [Suspect]
     Active Substance: NAPROXEN
     Indication: Hypermobility syndrome
  3. NAPROXEN [Suspect]
     Active Substance: NAPROXEN
     Indication: Hernia
  4. NAPROXEN [Suspect]
     Active Substance: NAPROXEN
     Indication: Hyperparathyroidism
  5. NAPROXEN [Suspect]
     Active Substance: NAPROXEN
     Indication: Fibromyalgia
  6. NAPROXEN [Suspect]
     Active Substance: NAPROXEN
     Indication: Neuropathy peripheral
  7. NAPROXEN [Suspect]
     Active Substance: NAPROXEN
     Indication: Spinal osteoarthritis
  8. NAPROXEN [Suspect]
     Active Substance: NAPROXEN
     Indication: Irritable bowel syndrome
  9. NAPROXEN [Suspect]
     Active Substance: NAPROXEN
     Indication: Hemiplegic migraine
  10. NAPROXEN [Suspect]
     Active Substance: NAPROXEN
     Indication: Arthralgia
  11. NAPROXEN [Suspect]
     Active Substance: NAPROXEN
     Indication: Intervertebral disc degeneration
  12. COCODAMOL [Suspect]
     Active Substance: ACETAMINOPHEN\CODEINE PHOSPHATE
     Indication: Neuropathy peripheral
     Route: 065
  13. COCODAMOL [Suspect]
     Active Substance: ACETAMINOPHEN\CODEINE PHOSPHATE
     Indication: Hemiplegic migraine
  14. COCODAMOL [Suspect]
     Active Substance: ACETAMINOPHEN\CODEINE PHOSPHATE
     Indication: Endometriosis
  15. COCODAMOL [Suspect]
     Active Substance: ACETAMINOPHEN\CODEINE PHOSPHATE
     Indication: Hyperparathyroidism
  16. COCODAMOL [Suspect]
     Active Substance: ACETAMINOPHEN\CODEINE PHOSPHATE
     Indication: Hernia
  17. COCODAMOL [Suspect]
     Active Substance: ACETAMINOPHEN\CODEINE PHOSPHATE
     Indication: Intervertebral disc degeneration
  18. COCODAMOL [Suspect]
     Active Substance: ACETAMINOPHEN\CODEINE PHOSPHATE
     Indication: Fibromyalgia
  19. COCODAMOL [Suspect]
     Active Substance: ACETAMINOPHEN\CODEINE PHOSPHATE
     Indication: Irritable bowel syndrome
  20. COCODAMOL [Suspect]
     Active Substance: ACETAMINOPHEN\CODEINE PHOSPHATE
     Indication: Spinal osteoarthritis
  21. COCODAMOL [Suspect]
     Active Substance: ACETAMINOPHEN\CODEINE PHOSPHATE
     Indication: Arthralgia
  22. COCODAMOL [Suspect]
     Active Substance: ACETAMINOPHEN\CODEINE PHOSPHATE
     Indication: Hypermobility syndrome
  23. TRAMADOL [Suspect]
     Active Substance: TRAMADOL
     Indication: Arthralgia
     Route: 065
  24. TRAMADOL [Suspect]
     Active Substance: TRAMADOL
     Indication: Hyperparathyroidism
  25. TRAMADOL [Suspect]
     Active Substance: TRAMADOL
     Indication: Hypermobility syndrome
  26. TRAMADOL [Suspect]
     Active Substance: TRAMADOL
     Indication: Irritable bowel syndrome
  27. TRAMADOL [Suspect]
     Active Substance: TRAMADOL
     Indication: Endometriosis
  28. TRAMADOL [Suspect]
     Active Substance: TRAMADOL
     Indication: Hernia
  29. TRAMADOL [Suspect]
     Active Substance: TRAMADOL
     Indication: Neuropathy peripheral
  30. TRAMADOL [Suspect]
     Active Substance: TRAMADOL
     Indication: Fibromyalgia
  31. TRAMADOL [Suspect]
     Active Substance: TRAMADOL
     Indication: Intervertebral disc degeneration
  32. TRAMADOL [Suspect]
     Active Substance: TRAMADOL
     Indication: Spinal osteoarthritis
  33. TRAMADOL [Suspect]
     Active Substance: TRAMADOL
     Indication: Hemiplegic migraine
  34. PREGABALIN [Suspect]
     Active Substance: PREGABALIN
     Indication: Neuropathy peripheral
     Route: 065
  35. PREGABALIN [Suspect]
     Active Substance: PREGABALIN
     Indication: Hyperparathyroidism
  36. PREGABALIN [Suspect]
     Active Substance: PREGABALIN
     Indication: Arthralgia
  37. PREGABALIN [Suspect]
     Active Substance: PREGABALIN
     Indication: Hemiplegic migraine
  38. PREGABALIN [Suspect]
     Active Substance: PREGABALIN
     Indication: Intervertebral disc degeneration
  39. PREGABALIN [Suspect]
     Active Substance: PREGABALIN
     Indication: Hernia
  40. PREGABALIN [Suspect]
     Active Substance: PREGABALIN
     Indication: Irritable bowel syndrome
  41. PREGABALIN [Suspect]
     Active Substance: PREGABALIN
     Indication: Spinal osteoarthritis
  42. PREGABALIN [Suspect]
     Active Substance: PREGABALIN
     Indication: Hypermobility syndrome
  43. PREGABALIN [Suspect]
     Active Substance: PREGABALIN
     Indication: Endometriosis
  44. PREGABALIN [Suspect]
     Active Substance: PREGABALIN
     Indication: Fibromyalgia
  45. DULOXETINE [Suspect]
     Active Substance: DULOXETINE
     Indication: Hernia
     Route: 065
  46. DULOXETINE [Suspect]
     Active Substance: DULOXETINE
     Indication: Intervertebral disc degeneration
  47. DULOXETINE [Suspect]
     Active Substance: DULOXETINE
     Indication: Neuropathy peripheral
  48. DULOXETINE [Suspect]
     Active Substance: DULOXETINE
     Indication: Fibromyalgia
  49. DULOXETINE [Suspect]
     Active Substance: DULOXETINE
     Indication: Irritable bowel syndrome
  50. DULOXETINE [Suspect]
     Active Substance: DULOXETINE
     Indication: Endometriosis
  51. DULOXETINE [Suspect]
     Active Substance: DULOXETINE
     Indication: Hyperparathyroidism
  52. DULOXETINE [Suspect]
     Active Substance: DULOXETINE
     Indication: Arthralgia
  53. DULOXETINE [Suspect]
     Active Substance: DULOXETINE
     Indication: Spinal osteoarthritis
  54. DULOXETINE [Suspect]
     Active Substance: DULOXETINE
     Indication: Hemiplegic migraine
  55. DULOXETINE [Suspect]
     Active Substance: DULOXETINE
     Indication: Hypermobility syndrome
  56. TRAMADOL HYDROCHLORIDE [Suspect]
     Active Substance: TRAMADOL HYDROCHLORIDE
     Indication: Irritable bowel syndrome
     Route: 065
  57. TRAMADOL HYDROCHLORIDE [Suspect]
     Active Substance: TRAMADOL HYDROCHLORIDE
     Indication: Endometriosis
  58. TRAMADOL HYDROCHLORIDE [Suspect]
     Active Substance: TRAMADOL HYDROCHLORIDE
     Indication: Spinal osteoarthritis
  59. TRAMADOL HYDROCHLORIDE [Suspect]
     Active Substance: TRAMADOL HYDROCHLORIDE
     Indication: Hypermobility syndrome
  60. TRAMADOL HYDROCHLORIDE [Suspect]
     Active Substance: TRAMADOL HYDROCHLORIDE
     Indication: Neuropathy peripheral
  61. TRAMADOL HYDROCHLORIDE [Suspect]
     Active Substance: TRAMADOL HYDROCHLORIDE
     Indication: Hernia
  62. TRAMADOL HYDROCHLORIDE [Suspect]
     Active Substance: TRAMADOL HYDROCHLORIDE
     Indication: Hemiplegic migraine
  63. TRAMADOL HYDROCHLORIDE [Suspect]
     Active Substance: TRAMADOL HYDROCHLORIDE
     Indication: Hyperparathyroidism
  64. TRAMADOL HYDROCHLORIDE [Suspect]
     Active Substance: TRAMADOL HYDROCHLORIDE
     Indication: Arthralgia
  65. TRAMADOL HYDROCHLORIDE [Suspect]
     Active Substance: TRAMADOL HYDROCHLORIDE
     Indication: Fibromyalgia
  66. TRAMADOL HYDROCHLORIDE [Suspect]
     Active Substance: TRAMADOL HYDROCHLORIDE
     Indication: Intervertebral disc degeneration
  67. BUTYLSCOPOLAMINE BROMIDE [Suspect]
     Active Substance: BUTYLSCOPOLAMINE BROMIDE
     Indication: Irritable bowel syndrome
     Route: 065
  68. ASPIRIN [Suspect]
     Active Substance: ASPIRIN
     Indication: Irritable bowel syndrome
     Route: 065
  69. ASPIRIN [Suspect]
     Active Substance: ASPIRIN
     Indication: Arthralgia
  70. ASPIRIN [Suspect]
     Active Substance: ASPIRIN
     Indication: Hyperparathyroidism
  71. ASPIRIN [Suspect]
     Active Substance: ASPIRIN
     Indication: Hernia
  72. ASPIRIN [Suspect]
     Active Substance: ASPIRIN
     Indication: Neuropathy peripheral
  73. ASPIRIN [Suspect]
     Active Substance: ASPIRIN
     Indication: Spinal osteoarthritis
  74. ASPIRIN [Suspect]
     Active Substance: ASPIRIN
     Indication: Intervertebral disc degeneration
  75. ASPIRIN [Suspect]
     Active Substance: ASPIRIN
     Indication: Hypermobility syndrome
  76. ASPIRIN [Suspect]
     Active Substance: ASPIRIN
     Indication: Hemiplegic migraine
  77. ASPIRIN [Suspect]
     Active Substance: ASPIRIN
     Indication: Fibromyalgia
  78. ASPIRIN [Suspect]
     Active Substance: ASPIRIN
     Indication: Endometriosis
  79. SENNA [Suspect]
     Active Substance: SENNOSIDES
     Indication: Irritable bowel syndrome
     Route: 065

REACTIONS (9)
  - Post-traumatic stress disorder [Unknown]
  - Pneumonia [Unknown]
  - Lung disorder [Unknown]
  - Asthma [Unknown]
  - Rash [Unknown]
  - Constipation [Unknown]
  - Diarrhoea [Unknown]
  - Irritable bowel syndrome [Unknown]
  - Traumatic lung injury [Unknown]
